FAERS Safety Report 5249296-7 (Version None)
Quarter: 2007Q1

REPORT INFORMATION
  Report Type: 
  Country: None (occurrence: None)
  Receive Date: 20070223
  Receipt Date: 20070220
  Transmission Date: 20070707
  Serious: Yes (Death, Hospitalization)
  Sender: FDA-Public Use
  Company Number: 152902ISR

PATIENT
  Age: 67 Year
  Sex: Female

DRUGS (3)
  1. PREDNISOLONE [Suspect]
     Dosage: 10 MG
  2. CYCLOSPORINE [Suspect]
     Dosage: TROUGH LEVEL 100.150 MICROG/L
  3. MYCOPHENOLATE MOFETIL [Suspect]
     Dosage: 2 X 100MG [FREQUENCY OF ADMINISTRATION NOT STATED].

REACTIONS (16)
  - ABDOMINAL TENDERNESS [None]
  - ACUTE RESPIRATORY DISTRESS SYNDROME [None]
  - DEPRESSED LEVEL OF CONSCIOUSNESS [None]
  - DIARRHOEA [None]
  - DISSEMINATED INTRAVASCULAR COAGULATION [None]
  - ENCEPHALOPATHY [None]
  - GRANULOCYTOSIS [None]
  - HAEMOGLOBIN DECREASED [None]
  - HEART RATE INCREASED [None]
  - HEPATIC FAILURE [None]
  - HYPERAMMONAEMIA [None]
  - LYMPHADENOPATHY [None]
  - MYCOBACTERIAL INFECTION [None]
  - PALPITATIONS [None]
  - RENAL FAILURE [None]
  - SPLENOMEGALY [None]
